FAERS Safety Report 5329455-5 (Version None)
Quarter: 2007Q2

REPORT INFORMATION
  Report Type: 
  Country: None (occurrence: None)
  Receive Date: 20070221
  Receipt Date: 20060427
  Transmission Date: 20071010
  Serious: Yes (Other)
  Sender: FDA-Public Use
  Company Number: US-2006-010097

PATIENT
  Age: 48 Year
  Sex: Female
  Weight: 60.8 kg

DRUGS (9)
  1. CLIMARA [Suspect]
     Indication: HOT FLUSH
     Dosage: 0.1 MG/D, CONT, TRANSDERMAL
     Route: 062
  2. PREMPHASE (PREMARIN;CYCRIN 14/14) [Suspect]
     Indication: HOT FLUSH
  3. ACTIVELLA [Suspect]
     Indication: HOT FLUSH
  4. PREMPRO [Suspect]
     Indication: HOT FLUSH
  5. PREMARIN [Suspect]
     Indication: HOT FLUSH
  6. PREFEST [Suspect]
  7. NORVASC [Concomitant]
  8. LIPITOR /NET/(ATORVASTATIN CALCIUM) [Concomitant]
  9. SERAX [Concomitant]

REACTIONS (20)
  - AMNESIA [None]
  - ANOREXIA [None]
  - BREAST CANCER STAGE IV [None]
  - DEPRESSION [None]
  - DISTURBANCE IN ATTENTION [None]
  - FATIGUE [None]
  - FEAR [None]
  - FIBROCYSTIC BREAST DISEASE [None]
  - HYPOAESTHESIA [None]
  - INSOMNIA [None]
  - LIVER DISORDER [None]
  - LYMPHOEDEMA [None]
  - MOOD SWINGS [None]
  - NIGHT SWEATS [None]
  - RADIATION SKIN INJURY [None]
  - SCAR [None]
  - STRESS [None]
  - UTERINE LEIOMYOMA [None]
  - VEIN DISORDER [None]
  - WEIGHT DECREASED [None]
